FAERS Safety Report 17372226 (Version 1)
Quarter: 2020Q1

REPORT INFORMATION
  Report Type: Report from Study
  Country: US (occurrence: US)
  Receive Date: 20200205
  Receipt Date: 20200205
  Transmission Date: 20200409
  Serious: Yes (Other)
  Sender: FDA-Public Use
  Company Number: US-ASTRAZENECA-2020SE15547

PATIENT
  Sex: Female

DRUGS (1)
  1. LYNPARZA [Suspect]
     Active Substance: OLAPARIB
     Indication: MALIGNANT NIPPLE NEOPLASM FEMALE
     Route: 048

REACTIONS (3)
  - General physical health deterioration [Unknown]
  - Radiation dysphagia [Unknown]
  - Oesophageal candidiasis [Unknown]
